FAERS Safety Report 11807192 (Version 1)
Quarter: 2015Q4

REPORT INFORMATION
  Report Type: Spontaneous
  Country: US (occurrence: US)
  Receive Date: 20151207
  Receipt Date: 20151207
  Transmission Date: 20160305
  Serious: Yes (Other)
  Sender: FDA-Public Use
  Company Number: US-009507513-1512USA001765

PATIENT
  Sex: Male
  Weight: 104.3 kg

DRUGS (1)
  1. ZOCOR [Suspect]
     Active Substance: SIMVASTATIN
     Dosage: UNK
     Route: 048
     Dates: start: 2000

REACTIONS (5)
  - Coronary artery bypass [Unknown]
  - Fall [Recovered/Resolved]
  - Dysstasia [Recovered/Resolved]
  - Thyroidectomy [Unknown]
  - Knee arthroplasty [Unknown]

NARRATIVE: CASE EVENT DATE: 2003
